FAERS Safety Report 9219052 (Version 2)
Quarter: 2013Q2

REPORT INFORMATION
  Report Type: Report from Study
  Country: US (occurrence: US)
  Receive Date: 20130409
  Receipt Date: 20130419
  Transmission Date: 20140414
  Serious: Yes (Other)
  Sender: FDA-Public Use
  Company Number: PHEH2013US007765

PATIENT
  Age: 84 Year
  Sex: Male

DRUGS (1)
  1. EXELON PATCH [Suspect]
     Indication: DEMENTIA ALZHEIMER^S TYPE
     Dosage: 9.5 MG, DAILY
     Route: 062

REACTIONS (3)
  - Herpes zoster [Recovered/Resolved]
  - Pain [Not Recovered/Not Resolved]
  - Application site erythema [Unknown]
